FAERS Safety Report 7500555-4 (Version None)
Quarter: 2011Q2

REPORT INFORMATION
  Report Type: 
  Country: None (occurrence: None)
  Receive Date: 20110524
  Receipt Date: 20110519
  Transmission Date: 20111010
  Serious: No
  Sender: FDA-Public Use
  Company Number: US-PFIZER INC-2011108779

PATIENT
  Sex: Male

DRUGS (7)
  1. XANAX [Suspect]
     Indication: PANIC ATTACK
     Dosage: 1 MG, 3X/DAY
  2. LAMICTAL [Suspect]
     Dosage: UNK
  3. KLONOPIN [Suspect]
     Dosage: UNK
  4. ATIVAN [Suspect]
     Dosage: UNK
  5. VALIUM [Suspect]
     Dosage: UNK
  6. TEMAZEPAM [Suspect]
  7. TOPAMAX [Suspect]
     Dosage: UNK

REACTIONS (1)
  - DRUG INEFFECTIVE [None]
